FAERS Safety Report 10090942 (Version 2)
Quarter: 2014Q2

REPORT INFORMATION
  Report Type: Spontaneous
  Country: US (occurrence: US)
  Receive Date: 20140421
  Receipt Date: 20140421
  Transmission Date: 20141212
  Serious: No
  Sender: FDA-Public Use
  Company Number: US-GILEAD-2012-0063516

PATIENT
  Age: 73 Year
  Sex: Female

DRUGS (5)
  1. LETAIRIS [Suspect]
     Indication: PULMONARY HYPERTENSION
     Dosage: 5 MG, UNK
     Route: 048
     Dates: start: 20121005, end: 20121023
  2. LETAIRIS [Suspect]
     Indication: INTERSTITIAL LUNG DISEASE
  3. LETAIRIS [Suspect]
     Indication: FIBROSIS
  4. LETAIRIS [Suspect]
     Indication: SCLERODERMA
  5. ADVAIR [Concomitant]

REACTIONS (3)
  - Fluid retention [Not Recovered/Not Resolved]
  - Swelling [Unknown]
  - Oedema peripheral [Unknown]
